FAERS Safety Report 8719362 (Version 6)
Quarter: 2013Q2

REPORT INFORMATION
  Report Type: Report from Study
  Country: JP (occurrence: JP)
  Receive Date: 20120813
  Receipt Date: 20130521
  Transmission Date: 20140414
  Serious: Yes (Hospitalization, Other)
  Sender: FDA-Public Use
  Company Number: JP-MERCK-2012SP019397

PATIENT
  Age: 65 Year
  Sex: Male
  Weight: 71 kg

DRUGS (14)
  1. PEGINTRON [Suspect]
     Indication: CHRONIC HEPATITIS C
     Dosage: 1.5 UG/KG/WEEK
     Route: 058
     Dates: start: 20120124, end: 20120327
  2. PEGINTRON [Suspect]
     Dosage: 1.5 UG/KG/WEEK
     Route: 058
     Dates: start: 20120410, end: 20120410
  3. REBETOL [Suspect]
     Indication: CHRONIC HEPATITIS C
     Dosage: 800 MG, QD
     Route: 048
     Dates: start: 20120124, end: 20120326
  4. REBETOL [Suspect]
     Dosage: 400 MG, QD
     Route: 048
     Dates: start: 20120327, end: 20120327
  5. REBETOL [Suspect]
     Dosage: 200 MG, QD
     Route: 048
     Dates: start: 20120328, end: 20120328
  6. REBETOL [Suspect]
     Dosage: 400 MG, QD
     Route: 048
     Dates: start: 20120410, end: 20120413
  7. TELAVIC [Suspect]
     Indication: CHRONIC HEPATITIS C
     Dosage: 2250 MG, QD
     Route: 048
     Dates: start: 20120124, end: 20120201
  8. TELAVIC [Suspect]
     Dosage: DOSE: 1000 MG, QD
     Route: 048
     Dates: start: 20120202, end: 20120202
  9. TELAVIC [Suspect]
     Dosage: DOSE: 1500 MG, QD
     Route: 048
     Dates: start: 20120203, end: 20120326
  10. TELAVIC [Suspect]
     Dosage: 750 MG, QD
     Route: 048
     Dates: start: 20120327, end: 20120330
  11. GASPORT D [Concomitant]
     Indication: PROPHYLAXIS
     Dosage: 40 MG, QD
     Route: 048
     Dates: start: 20120202, end: 20120618
  12. BARACLUDE [Concomitant]
     Indication: CHRONIC HEPATITIS B
     Dosage: 0.5 MG, QD
     Route: 048
     Dates: start: 20120403, end: 20120604
  13. LECICARBON [Concomitant]
     Indication: CONSTIPATION
     Dosage: 2 DF, ONCE
     Route: 054
     Dates: start: 20120404, end: 20120404
  14. URSO [Concomitant]
     Indication: CHRONIC HEPATITIS C
     Dosage: 600 MG, QD
     Route: 048
     Dates: start: 20120529

REACTIONS (5)
  - Drug reaction with eosinophilia and systemic symptoms [Recovering/Resolving]
  - White blood cell count increased [Recovering/Resolving]
  - Listless [Recovering/Resolving]
  - Erythema multiforme [Recovering/Resolving]
  - Depressive symptom [Recovering/Resolving]
